FAERS Safety Report 18322521 (Version 1)
Quarter: 2020Q3

REPORT INFORMATION
  Report Type: Spontaneous
  Country: US (occurrence: US)
  Receive Date: 20200929
  Receipt Date: 20200929
  Transmission Date: 20201103
  Serious: No
  Sender: FDA-Public Use
  Company Number: NVSC2020US264060

PATIENT
  Age: 45 Year
  Sex: Male

DRUGS (2)
  1. VOLTAREN EMULGEL [Suspect]
     Active Substance: DICLOFENAC DIETHYLAMINE
     Indication: ARTHRITIS
     Dosage: UNK (EVERY DAY)
     Route: 065
     Dates: start: 201903
  2. VOLTAREN EMULGEL [Suspect]
     Active Substance: DICLOFENAC DIETHYLAMINE
     Indication: NEUROPATHY PERIPHERAL

REACTIONS (3)
  - Product use in unapproved indication [Unknown]
  - Incorrect product administration duration [Unknown]
  - Drug effective for unapproved indication [Unknown]
